FAERS Safety Report 26139058 (Version 1)
Quarter: 2025Q4

REPORT INFORMATION
  Report Type: Spontaneous
  Country: CN (occurrence: CN)
  Receive Date: 20251210
  Receipt Date: 20251210
  Transmission Date: 20260118
  Serious: Yes (Other)
  Sender: RANBAXY
  Company Number: CN-SUN PHARMACEUTICAL INDUSTRIES LTD-2025R1-540610

PATIENT
  Age: 59 Year
  Sex: Male

DRUGS (3)
  1. CARBOPLATIN [Suspect]
     Active Substance: CARBOPLATIN
     Indication: Chemotherapy
     Dosage: AUC 5 DAY 1
     Route: 065
     Dates: start: 20240705
  2. CAMRELIZUMAB [Suspect]
     Active Substance: CAMRELIZUMAB
     Indication: Chemotherapy
     Dosage: 200 MILLIGRAM, DAY 1
     Route: 065
     Dates: start: 20240705
  3. PACLITAXEL [Suspect]
     Active Substance: PACLITAXEL
     Indication: Chemotherapy
     Dosage: 220 MILLIGRAM/SQ. METER, DAY 1
     Route: 065
     Dates: start: 20240705

REACTIONS (1)
  - Therapy partial responder [Unknown]
